FAERS Safety Report 9771278 (Version 2)
Quarter: 2013Q4

REPORT INFORMATION
  Report Type: Report from Study
  Country: FR (occurrence: FR)
  Receive Date: 20131218
  Receipt Date: 20131218
  Transmission Date: 20140711
  Serious: Yes (Hospitalization)
  Sender: FDA-Public Use
  Company Number: FR-ABBVIE-13P-056-1176521-00

PATIENT
  Age: 2 Month
  Sex: Female

DRUGS (1)
  1. PALIVIZUMAB [Suspect]
     Indication: ANTIVIRAL PROPHYLAXIS
     Dates: start: 20130930

REACTIONS (2)
  - Respiratory tract infection [Not Recovered/Not Resolved]
  - Inappropriate schedule of drug administration [Unknown]
